FAERS Safety Report 14030284 (Version 1)
Quarter: 2017Q4

REPORT INFORMATION
  Report Type: Spontaneous
  Country: ZA (occurrence: ZA)
  Receive Date: 20171002
  Receipt Date: 20171002
  Transmission Date: 20180321
  Serious: Yes (Hospitalization, Other)
  Sender: FDA-Public Use
  Company Number: ZA-MYLANLABS-2017M1060051

PATIENT
  Sex: Female

DRUGS (12)
  1. DIAGLUCIDE [Suspect]
     Active Substance: GLICLAZIDE
     Indication: TYPE 2 DIABETES MELLITUS
     Dosage: 60 MG, QD
     Dates: start: 20170413
  2. PURESIS [Suspect]
     Active Substance: FUROSEMIDE
     Indication: CARDIAC FAILURE
  3. MYLAN PANTOPRAZOLE 20 MG [Suspect]
     Active Substance: PANTOPRAZOLE SODIUM
     Indication: GASTRIC ULCER
     Dosage: 20 MG, QD
     Dates: start: 20170825
  4. PURESIS [Suspect]
     Active Substance: FUROSEMIDE
     Indication: HYPERTENSION
     Dosage: 40 MG, QD
     Dates: start: 20170608
  5. RYZODEG 70/30 [Suspect]
     Active Substance: INSULIN ASPART\INSULIN DEGLUDEC
     Indication: PRODUCT USED FOR UNKNOWN INDICATION
     Dosage: 32 IU, BID
     Route: 058
     Dates: start: 20170327
  6. MYLAN PANTOPRAZOLE 20 MG [Suspect]
     Active Substance: PANTOPRAZOLE SODIUM
     Indication: DUODENAL ULCER
  7. GANFORT [Suspect]
     Active Substance: BIMATOPROST\TIMOLOL
     Dosage: 1 GTT, HS
     Route: 047
     Dates: start: 20170907
  8. CARLOC [Suspect]
     Active Substance: CARVEDILOL
     Indication: CARDIAC DISCOMFORT
  9. PLENISH-K [Suspect]
     Active Substance: POTASSIUM CHLORIDE
     Indication: MINERAL SUPPLEMENTATION
     Dosage: 600 MG, BID
     Dates: start: 20170420
  10. CARLOC [Suspect]
     Active Substance: CARVEDILOL
     Indication: HYPERTENSION
     Dosage: 12.5 MG, QD
     Dates: start: 20170713
  11. PURESIS [Suspect]
     Active Substance: FUROSEMIDE
     Indication: OEDEMA
  12. TELGEN [Suspect]
     Active Substance: TELMISARTAN
     Dosage: 80 MG, BID
     Dates: start: 20170705

REACTIONS (1)
  - Hospitalisation [Unknown]

NARRATIVE: CASE EVENT DATE: 20170920
